FAERS Safety Report 5226006-0 (Version None)
Quarter: 2007Q1

REPORT INFORMATION
  Report Type: 
  Country: None (occurrence: None)
  Receive Date: 20070129
  Receipt Date: 20061117
  Transmission Date: 20070707
  Serious: Yes (Other)
  Sender: FDA-Public Use
  Company Number: 805#1#2006-00138

PATIENT
  Age: 86 Year
  Sex: Male

DRUGS (7)
  1. ALPROSTADIL [Suspect]
     Indication: ARTERIOSCLEROSIS OBLITERANS
     Dosage: 40 MCG (20 MCG 2 IN 1 DAY(S)); INTRAVENOUS DRIP
     Route: 041
     Dates: start: 20061113, end: 20061115
  2. CARVEDILOL [Concomitant]
  3. AZOSEMIDE [Concomitant]
  4. PAROXETINE HYDROCHLORIDE [Concomitant]
  5. ALLOPURINOL SODIUM [Concomitant]
  6. NICERITROL [Concomitant]
  7. CHINESE MEDICINE [Concomitant]

REACTIONS (9)
  - ANAEMIA [None]
  - ANURIA [None]
  - CARDIAC FAILURE CONGESTIVE [None]
  - CONDITION AGGRAVATED [None]
  - GENERAL PHYSICAL HEALTH DETERIORATION [None]
  - HEPATIC FAILURE [None]
  - HEPATORENAL SYNDROME [None]
  - PLATELET COUNT DECREASED [None]
  - RENAL FAILURE ACUTE [None]
